FAERS Safety Report 15159216 (Version 1)
Quarter: 2018Q3

REPORT INFORMATION
  Report Type: Spontaneous
  Country: US (occurrence: US)
  Receive Date: 20180620
  Receipt Date: 20180620
  Transmission Date: 20181010
  Serious: Yes (Disabling, Other)
  Sender: FDA-Public Use
  Company Number: None

PATIENT
  Age: 59 Year
  Sex: Female
  Weight: 71.1 kg

DRUGS (12)
  1. GABAPENTIN 300 MG CAPSULES 2 BID [Suspect]
     Active Substance: GABAPENTIN
     Indication: NEURALGIA
     Dosage: ?          QUANTITY:2 CAPSULE(S);?
     Route: 048
     Dates: start: 20171020, end: 20171220
  2. GABAPENTIN 300 MG CAPSULES 2 BID [Suspect]
     Active Substance: GABAPENTIN
     Indication: SEIZURE
     Dosage: ?          QUANTITY:2 CAPSULE(S);?
     Route: 048
     Dates: start: 20171020, end: 20171220
  3. TROKENDI XR [Concomitant]
     Active Substance: TOPIRAMATE
  4. IBUPROFEN. [Concomitant]
     Active Substance: IBUPROFEN
  5. EXCITALOPRAM [Concomitant]
  6. MULTIVITAMINS [Concomitant]
     Active Substance: VITAMINS
  7. SENEMET [Concomitant]
  8. GABAPENTIN 300 MG CAPSULES 2 BID [Suspect]
     Active Substance: GABAPENTIN
     Indication: HEADACHE
     Dosage: ?          QUANTITY:2 CAPSULE(S);?
     Route: 048
     Dates: start: 20171020, end: 20171220
  9. VERAPAMIL [Concomitant]
     Active Substance: VERAPAMIL HYDROCHLORIDE
  10. COENZYME Q10 [Concomitant]
     Active Substance: UBIDECARENONE
  11. OMEPRAZOLE. [Concomitant]
     Active Substance: OMEPRAZOLE
  12. HCTZ [Concomitant]
     Active Substance: HYDROCHLOROTHIAZIDE

REACTIONS (10)
  - Seizure [None]
  - Product substitution issue [None]
  - Therapeutic response changed [None]
  - Fall [None]
  - Dizziness [None]
  - Drug ineffective [None]
  - Fatigue [None]
  - Neuralgia [None]
  - Tooth fracture [None]
  - Tooth extraction [None]

NARRATIVE: CASE EVENT DATE: 20171107
